FAERS Safety Report 9431526 (Version 2)
Quarter: 2013Q4

REPORT INFORMATION
  Report Type: Spontaneous
  Country: JP (occurrence: JP)
  Receive Date: 20130730
  Receipt Date: 20131016
  Transmission Date: 20140711
  Serious: Yes (Other)
  Sender: FDA-Public Use
  Company Number: JP-009507513-1307JPN015461

PATIENT
  Age: 67 Year
  Sex: Female
  Weight: 56 kg

DRUGS (9)
  1. PEGINTRON [Suspect]
     Indication: CHRONIC HEPATITIS C
     Dosage: 1.4 MICROGRAM PER KILOGRAM, QW
     Route: 058
     Dates: start: 20130610, end: 20130708
  2. REBETOL [Suspect]
     Indication: CHRONIC HEPATITIS C
     Dosage: 400 MG, QD
     Route: 048
     Dates: start: 20130610, end: 20130715
  3. TELAVIC [Suspect]
     Indication: CHRONIC HEPATITIS C
     Dosage: 1500 MG QD
     Route: 048
     Dates: start: 20130610, end: 20130715
  4. PARIET [Concomitant]
     Dosage: 10 MG, QD
     Route: 048
     Dates: start: 20130611, end: 20130719
  5. MUCOSTA [Concomitant]
     Dosage: 100 MG, QD
     Route: 048
     Dates: start: 20130610, end: 20130715
  6. DEPAS [Concomitant]
     Dosage: 0.5 MG, QD
     Route: 048
     Dates: start: 20130708, end: 20130719
  7. ALFAROL [Concomitant]
     Dosage: 1 MICROGRAM, QD
     Route: 048
     Dates: start: 20130322, end: 20130720
  8. BIOTIN [Concomitant]
     Dosage: 3 DF, QD
     Route: 048
     Dates: end: 20130720
  9. LOBU [Concomitant]
     Dosage: 60 MG, QD
     Route: 048
     Dates: start: 20130610, end: 20130715

REACTIONS (4)
  - Disorientation [Recovering/Resolving]
  - Convulsion [Recovering/Resolving]
  - Pyelonephritis acute [Recovered/Resolved]
  - Ammonia increased [Recovered/Resolved]
